FAERS Safety Report 5529383-6 (Version None)
Quarter: 2007Q4

REPORT INFORMATION
  Report Type: 
  Country: None (occurrence: None)
  Receive Date: 20071129
  Receipt Date: 20071123
  Transmission Date: 20080405
  Serious: Yes (Other)
  Sender: FDA-Public Use
  Company Number: B0496510A

PATIENT
  Age: 57 Year
  Sex: Male
  Weight: 82 kg

DRUGS (1)
  1. GW572016 [Suspect]
     Indication: METASTATIC RENAL CELL CARCINOMA
     Dosage: 1250MG PER DAY
     Route: 048
     Dates: start: 20041012

REACTIONS (2)
  - ANAEMIA [None]
  - PULMONARY FIBROSIS [None]
